FAERS Safety Report 18740116 (Version 1)
Quarter: 2021Q1

REPORT INFORMATION
  Report Type: Report from Study
  Country: SE (occurrence: CN)
  Receive Date: 20210114
  Receipt Date: 20210114
  Transmission Date: 20210419
  Serious: Yes (Death, Hospitalization)
  Sender: FDA-Public Use
  Company Number: CN-ELI_LILLY_AND_COMPANY-CN202101003461

PATIENT
  Age: 65 Year
  Sex: Male

DRUGS (12)
  1. CARBOPLATIN. [Concomitant]
     Active Substance: CARBOPLATIN
     Indication: NON-SMALL CELL LUNG CANCER
     Dosage: 400 MG, UNKNOWN
     Route: 042
     Dates: start: 20180118, end: 20180301
  2. COBAMAMIDE [Concomitant]
     Active Substance: COBAMAMIDE
     Indication: ANAEMIA PROPHYLAXIS
     Dosage: 1.5 MG, DAILY
     Route: 042
     Dates: start: 20180210, end: 20180210
  3. GLUTAMINE [LEVOGLUTAMIDE] [Concomitant]
     Indication: NUTRITIONAL SUPPLEMENTATION
     Dosage: 10 G, DAILY
     Route: 042
     Dates: start: 20180208, end: 20180208
  4. AMINO ACIDS NOS [Concomitant]
     Active Substance: AMINO ACIDS, SOURCE UNSPECIFIED
     Indication: NUTRITIONAL SUPPLEMENTATION
     Dosage: 250 ML, DAILY
     Route: 042
     Dates: start: 20180208, end: 20180208
  5. PALONOSETRON HYDROCHLORIDE. [Concomitant]
     Active Substance: PALONOSETRON HYDROCHLORIDE
     Indication: PROPHYLAXIS OF NAUSEA AND VOMITING
     Dosage: 250 UG, QOD
     Route: 042
     Dates: start: 20180208, end: 20180210
  6. VITAMIN B12 [Concomitant]
     Active Substance: CYANOCOBALAMIN
     Indication: VITAMIN SUPPLEMENTATION
     Dosage: 1 MG, SINGLE
     Route: 030
     Dates: start: 20180208, end: 20180208
  7. SACCHARATED IRON OXIDE [Concomitant]
     Active Substance: IRON SUCROSE
     Indication: ANAEMIA PROPHYLAXIS
     Dosage: 200 MG, DAILY
     Route: 042
     Dates: start: 20180208, end: 20180208
  8. PEMETREXED. [Suspect]
     Active Substance: PEMETREXED
     Indication: NON-SMALL CELL LUNG CANCER
     Dosage: 800 MG, UNKNOWN
     Route: 042
     Dates: start: 20180118, end: 20180301
  9. FOLIC ACID. [Concomitant]
     Active Substance: FOLIC ACID
     Indication: PREMEDICATION
     Dosage: 0.4 MG, DAILY
     Route: 048
     Dates: start: 20180111
  10. DEXAMETHASONE ACETATE [Concomitant]
     Active Substance: DEXAMETHASONE ACETATE
     Indication: PREMEDICATION
     Dosage: 4 MG, BID
     Route: 048
     Dates: start: 20180208, end: 20180209
  11. RIBOFLAVIN SODIUM PHOSPHATE [Concomitant]
     Active Substance: RIBOFLAVIN 5^-PHOSPHATE SODIUM ANHYDROUS
     Indication: NUTRITIONAL SUPPLEMENTATION
     Dosage: 30 MG, DAILY
     Route: 042
     Dates: start: 20180208, end: 20180208
  12. GRANULOCYTE COLONY STIMULATING FACTOR [Concomitant]
     Active Substance: GRANULOCYTE COLONY-STIMULATING FACTOR NOS
     Indication: PROPHYLAXIS
     Dosage: 6 MG, SINGLE
     Route: 058
     Dates: start: 20180209, end: 20180209

REACTIONS (3)
  - Palpitations [Not Recovered/Not Resolved]
  - Anaemia [Not Recovered/Not Resolved]
  - Nausea [Recovered/Resolved]

NARRATIVE: CASE EVENT DATE: 20180211
